FAERS Safety Report 7056389-0 (Version None)
Quarter: 2010Q4

REPORT INFORMATION
  Report Type: 
  Country: None (occurrence: None)
  Receive Date: 20101018
  Receipt Date: 20101004
  Transmission Date: 20110411
  Serious: Yes (Other)
  Sender: FDA-Public Use
  Company Number: JP-1183140

PATIENT
  Age: 66 Year
  Sex: Female

DRUGS (10)
  1. BSS PLUS [Suspect]
     Dosage: INTRAOCULAR
     Route: 031
     Dates: start: 20100817, end: 20100817
  2. BOSMIN (EPINEPHRINE HYDROCHLORIDE) [Concomitant]
  3. DIAGNOSTIC AGENTS FOR OPHTHALMIC USE (DIAGNOSTIC AGENTS FOR OPHTHALMIC [Concomitant]
  4. GATIFLO (GATIFLOXACIN) [Concomitant]
  5. NEOSYNESIN (PHENYLEPHRINE HYDROCHLORIDE) [Concomitant]
  6. MYDRIN-P (MYDRIN-P) [Concomitant]
  7. SEFMAZON (CEFAZOLIN SODIUM) [Concomitant]
  8. REPLAS (SOLITA-TL) [Concomitant]
  9. VISCOAT (VISCOAT) [Concomitant]
  10. HEALON (HYALURONATE SODIUM) [Concomitant]

REACTIONS (3)
  - CORNEAL EROSION [None]
  - CORNEAL OEDEMA [None]
  - CORNEAL OPACITY [None]
